FAERS Safety Report 6312898-0 (Version None)
Quarter: 2009Q3

REPORT INFORMATION
  Report Type: 
  Country: None (occurrence: None)
  Receive Date: 20090818
  Receipt Date: 20090813
  Transmission Date: 20100115
  Serious: No
  Sender: FDA-Public Use
  Company Number: US-B.I. PHARMACEUTICALS,INC./RIDGEFIELD-2009-BP-08660BP

PATIENT
  Sex: Female

DRUGS (7)
  1. SPIRIVA [Suspect]
     Indication: CHRONIC OBSTRUCTIVE PULMONARY DISEASE
     Dosage: 18 MCG
     Dates: start: 20050101
  2. SPIRIVA [Suspect]
     Indication: PULMONARY HYPERTENSION
  3. SPIRIVA [Suspect]
     Indication: EMPHYSEMA
  4. DIOVAN HCT [Concomitant]
  5. ADVAIR HFA [Concomitant]
  6. ALBUTEROL [Concomitant]
  7. VARIOUS NSAIDS [Concomitant]

REACTIONS (1)
  - BLOOD GLUCOSE INCREASED [None]
